FAERS Safety Report 8766823 (Version 2)
Quarter: 2012Q4

REPORT INFORMATION
  Report Type: 
  Country: US (occurrence: US)
  Receive Date: 20120903
  Receipt Date: 20121127
  Transmission Date: 20130627
  Serious: Yes (Other)
  Sender: FDA-Public Use
  Company Number: US-BAYER-2012-088456

PATIENT
  Age: 28 Year
  Sex: Female

DRUGS (9)
  1. YASMIN [Suspect]
     Dosage: UNK
     Dates: start: 200904, end: 200907
  2. OCELLA [Suspect]
     Dosage: UNK
     Dates: start: 200904, end: 200907
  3. YAZ [Suspect]
  4. TOPAMAX [Concomitant]
     Dosage: 50 mg, 2
  5. VITAMINS [Concomitant]
     Dosage: UNK
  6. BIOTIN [Concomitant]
  7. COD LIVER OIL [Concomitant]
  8. MOTRIN [Concomitant]
  9. ASPIRIN [Concomitant]

REACTIONS (8)
  - Thrombosis [None]
  - Thrombophlebitis superficial [None]
  - Injury [None]
  - Pain [None]
  - General physical health deterioration [None]
  - Emotional distress [None]
  - Anxiety [None]
  - Pain [None]
